FAERS Safety Report 10205260 (Version 1)
Quarter: 2014Q2

REPORT INFORMATION
  Report Type: Spontaneous
  Country: US (occurrence: None)
  Receive Date: 20140527
  Receipt Date: 20140527
  Transmission Date: 20141212
  Serious: Yes (Hospitalization)
  Sender: FDA-Public Use
  Company Number: None

PATIENT
  Age: 79 Year
  Sex: Male

DRUGS (11)
  1. HALOPERIDOL [Suspect]
     Indication: ANXIETY
     Dosage: 0.5 MG, EVERY 6 HOURS, IV?
     Route: 042
     Dates: start: 20120113, end: 20120114
  2. AMIODARONE [Concomitant]
  3. CHLORHEXADINE [Concomitant]
  4. DIGOXIN [Concomitant]
  5. HALOPERIDOL [Concomitant]
  6. LORAZEPAM [Concomitant]
  7. METOPROLOL [Concomitant]
  8. PIPERACILLIN/TAZOBACTAM [Concomitant]
  9. SIMVASTATIN [Concomitant]
  10. HEPARIN [Concomitant]
  11. ACETAMINOPHEN [Concomitant]

REACTIONS (1)
  - Electrocardiogram QT prolonged [None]
